FAERS Safety Report 17956147 (Version 1)
Quarter: 2020Q2

REPORT INFORMATION
  Report Type: Spontaneous
  Country: PR (occurrence: PR)
  Receive Date: 20200629
  Receipt Date: 20200629
  Transmission Date: 20200714
  Serious: No
  Sender: FDA-Public Use
  Company Number: PR-PFIZER INC-2020249044

PATIENT
  Age: 50 Year
  Sex: Female

DRUGS (1)
  1. CELEBREX [Suspect]
     Active Substance: CELECOXIB
     Dosage: 200 MG

REACTIONS (5)
  - Rash [Unknown]
  - Erythema [Unknown]
  - Ear swelling [Unknown]
  - Pyrexia [Unknown]
  - Swelling face [Unknown]

NARRATIVE: CASE EVENT DATE: 20200626
